FAERS Safety Report 5277265-X (Version None)
Quarter: 2007Q1

REPORT INFORMATION
  Report Type: 
  Country: None (occurrence: None)
  Receive Date: 20070327
  Receipt Date: 20070322
  Transmission Date: 20070707
  Serious: Yes (Other)
  Sender: FDA-Public Use
  Company Number: US-GLAXOSMITHKLINE-A0644693A

PATIENT
  Sex: Male

DRUGS (1)
  1. COREG [Suspect]
     Indication: OBSTRUCTION
     Dosage: 6.25MG TWICE PER DAY
     Route: 065

REACTIONS (2)
  - ATRIAL FIBRILLATION [None]
  - DYSPNOEA [None]
